FAERS Safety Report 20744504 (Version 1)
Quarter: 2022Q2

REPORT INFORMATION
  Report Type: Spontaneous
  Country: US (occurrence: US)
  Receive Date: 20220425
  Receipt Date: 20220425
  Transmission Date: 20220721
  Serious: No
  Sender: FDA-Public Use
  Company Number: US-JNJFOC-20220432754

PATIENT
  Sex: Female
  Weight: 72.640 kg

DRUGS (1)
  1. REMICADE [Suspect]
     Active Substance: INFLIXIMAB
     Indication: Colitis ulcerative
     Dosage: 3 VIALS
     Route: 042

REACTIONS (5)
  - Product contamination [Unknown]
  - Product dose omission issue [Unknown]
  - Scar [Unknown]
  - Angiopathy [Unknown]
  - Abdominal pain upper [Unknown]

NARRATIVE: CASE EVENT DATE: 20220101
